FAERS Safety Report 7021707-6 (Version None)
Quarter: 2010Q3

REPORT INFORMATION
  Report Type: 
  Country: None (occurrence: None)
  Receive Date: 20100930
  Receipt Date: 20100922
  Transmission Date: 20110219
  Serious: Yes (Other)
  Sender: FDA-Public Use
  Company Number: DE-BIOGENIDEC-2010BI030171

PATIENT
  Age: 30 Year
  Sex: Female

DRUGS (3)
  1. TYSABRI [Suspect]
     Indication: RELAPSING-REMITTING MULTIPLE SCLEROSIS
     Route: 042
     Dates: start: 20060101, end: 20081101
  2. TYSABRI [Suspect]
     Route: 042
     Dates: end: 20100418
  3. TYSABRI [Suspect]
     Route: 042
     Dates: start: 20100715

REACTIONS (2)
  - MULTIPLE SCLEROSIS RELAPSE [None]
  - REBOUND EFFECT [None]
